FAERS Safety Report 24334471 (Version 1)
Quarter: 2024Q3

REPORT INFORMATION
  Report Type: Report from Study
  Country: SA (occurrence: SA)
  Receive Date: 20240918
  Receipt Date: 20240918
  Transmission Date: 20241017
  Serious: Yes (Other)
  Sender: GLAXOSMITHKLINE
  Company Number: SA-GLAXOSMITHKLINE-SA2023EME181302

PATIENT

DRUGS (1)
  1. MEPOLIZUMAB [Suspect]
     Active Substance: MEPOLIZUMAB
     Indication: Asthma
     Dosage: 100 MG, MO
     Dates: start: 20221019

REACTIONS (6)
  - Urinary tract operation [Recovered/Resolved]
  - Fall [Not Recovered/Not Resolved]
  - Tibial torsion [Not Recovered/Not Resolved]
  - Influenza [Not Recovered/Not Resolved]
  - Oropharyngeal pain [Not Recovered/Not Resolved]
  - Inappropriate schedule of product administration [Not Recovered/Not Resolved]

NARRATIVE: CASE EVENT DATE: 20231125
